FAERS Safety Report 5168544-5 (Version None)
Quarter: 2006Q4

REPORT INFORMATION
  Report Type: 
  Country: None (occurrence: None)
  Receive Date: 20061208
  Receipt Date: 20061128
  Transmission Date: 20070319
  Serious: Yes (Congenital Anomaly)
  Sender: FDA-Public Use
  Company Number: AT-ABBOTT-06P-009-0352006-00

PATIENT
  Age: 0 Day
  Sex: Female

DRUGS (1)
  1. DEPAKENE [Suspect]
     Indication: DRUG EXPOSURE DURING PREGNANCY
     Route: 065

REACTIONS (4)
  - CONGENITAL CENTRAL NERVOUS SYSTEM ANOMALY [None]
  - CONGENITAL HYDROCEPHALUS [None]
  - LISSENCEPHALY [None]
  - MENINGOMYELOCELE [None]
